FAERS Safety Report 12121476 (Version 1)
Quarter: 2016Q1

REPORT INFORMATION
  Report Type: Spontaneous
  Country: US (occurrence: US)
  Receive Date: 20160226
  Receipt Date: 20160226
  Transmission Date: 20160526
  Serious: No
  Sender: FDA-Public Use
  Company Number: US-ALLERGAN-1304817US

PATIENT
  Age: 8 Decade
  Sex: Male

DRUGS (2)
  1. CHOLESTEROL MEDICINE [Concomitant]
     Active Substance: UNSPECIFIED INGREDIENT
     Indication: BLOOD CHOLESTEROL INCREASED
     Dosage: UNK
  2. REFRESH OPTIVE [Suspect]
     Active Substance: CARBOXYMETHYLCELLULOSE SODIUM\GLYCERIN
     Indication: DRY EYE
     Dosage: 2 GTT, PRN
     Route: 047
     Dates: end: 20130401

REACTIONS (6)
  - Eye pruritus [Recovering/Resolving]
  - Dry eye [Recovering/Resolving]
  - Eye irritation [Recovering/Resolving]
  - Eye discharge [Recovering/Resolving]
  - Visual acuity reduced [Recovering/Resolving]
  - Vision blurred [Recovering/Resolving]
